FAERS Safety Report 24577031 (Version 1)
Quarter: 2024Q4

REPORT INFORMATION
  Report Type: Spontaneous
  Country: US (occurrence: None)
  Receive Date: 20241104
  Receipt Date: 20241104
  Transmission Date: 20250115
  Serious: Yes (Other)
  Sender: Public
  Company Number: None

PATIENT
  Age: 51 Year
  Sex: Female
  Weight: 51.71 kg

DRUGS (2)
  1. SUCRALFATE [Suspect]
     Active Substance: SUCRALFATE
     Indication: Irritable bowel syndrome
     Dosage: OTHER QUANTITY : 120 TABLETS;?FREQUENCY : 3 TIMES A DAY;?
     Route: 048
  2. DICYCLOMINE [Suspect]
     Active Substance: DICYCLOMINE HYDROCHLORIDE

REACTIONS (7)
  - Constipation [None]
  - Nausea [None]
  - Weight decreased [None]
  - Restlessness [None]
  - Erythema [None]
  - Skin irritation [None]
  - Drug ineffective [None]

NARRATIVE: CASE EVENT DATE: 20240520
